FAERS Safety Report 6582802-9 (Version None)
Quarter: 2010Q1

REPORT INFORMATION
  Report Type: 
  Country: None (occurrence: None)
  Receive Date: 20100216
  Receipt Date: 20100208
  Transmission Date: 20100710
  Serious: Yes (Hospitalization)
  Sender: FDA-Public Use
  Company Number: FR-PFIZER INC-2010016654

PATIENT
  Age: 25 Year
  Sex: Female
  Weight: 55 kg

DRUGS (7)
  1. TRIFLUCAN [Suspect]
     Indication: GENITAL INFECTION FEMALE
     Dosage: 50 MG, 1X/DAY
     Route: 048
     Dates: start: 20091223, end: 20100103
  2. ATARAX [Suspect]
     Indication: GENITAL INFECTION FEMALE
     Dosage: 25 MG, 1X/DAY
     Route: 048
     Dates: start: 20091223, end: 20100103
  3. TOLEXINE [Suspect]
     Indication: ACNE
     Dosage: UNK
     Route: 048
     Dates: start: 20090601, end: 20091101
  4. TOLEXINE [Suspect]
     Dosage: 1 DF, 1X/DAY
     Route: 048
     Dates: start: 20100102, end: 20100103
  5. ZELITREX [Suspect]
     Indication: GENITAL INFECTION FEMALE
     Dosage: 1 DF, 2X/DAY
     Route: 048
     Dates: start: 20091223, end: 20100103
  6. BETADINE GYNECOLOGICAL [Concomitant]
  7. ALL OTHER THERAPEUTIC PRODUCTS [Concomitant]

REACTIONS (1)
  - STEVENS-JOHNSON SYNDROME [None]
